FAERS Safety Report 16148782 (Version 1)
Quarter: 2019Q2

REPORT INFORMATION
  Report Type: Report from Study
  Country: US (occurrence: US)
  Receive Date: 20190402
  Receipt Date: 20190402
  Transmission Date: 20190711
  Serious: Yes (Other)
  Sender: FDA-Public Use
  Company Number: US-TAKEDA-2019TUS017104

PATIENT

DRUGS (2)
  1. BRIGATINIB [Suspect]
     Active Substance: BRIGATINIB
     Indication: ANAPLASTIC LYMPHOMA KINASE GENE MUTATION
  2. BRIGATINIB [Suspect]
     Active Substance: BRIGATINIB
     Indication: NON-SMALL CELL LUNG CANCER
     Dosage: UNK
     Route: 065

REACTIONS (19)
  - Cough [Unknown]
  - Dyspnoea [Unknown]
  - Emotional distress [Unknown]
  - Sleep disorder [Unknown]
  - Oropharyngeal pain [Unknown]
  - Pain [Unknown]
  - Metastases to central nervous system [Unknown]
  - Fatigue [Unknown]
  - Discomfort [Unknown]
  - Depressed mood [Unknown]
  - Memory impairment [Unknown]
  - Decreased appetite [Unknown]
  - Paraesthesia [Unknown]
  - Dry mouth [Unknown]
  - Hypoaesthesia [Unknown]
  - Somnolence [Unknown]
  - Depression [Unknown]
  - Constipation [Unknown]
  - Vomiting [Unknown]
